FAERS Safety Report 9237141 (Version 1)
Quarter: 2013Q2

REPORT INFORMATION
  Report Type: Spontaneous
  Country: US (occurrence: US)
  Receive Date: 20130417
  Receipt Date: 20130417
  Transmission Date: 20140414
  Serious: Yes (Hospitalization)
  Sender: FDA-Public Use
  Company Number: US-ROXANE LABORATORIES, INC.-2013-RO-00524RO

PATIENT
  Age: 32 Year
  Sex: Female
  Weight: 54 kg

DRUGS (11)
  1. PREDNISONE [Suspect]
     Indication: SYSTEMIC LUPUS ERYTHEMATOSUS
  2. PREDNISONE [Suspect]
     Indication: THROMBOTIC THROMBOCYTOPENIC PURPURA
  3. PREDNISONE [Suspect]
     Indication: IDIOPATHIC PULMONARY FIBROSIS
  4. MORPHINE [Suspect]
     Indication: APPENDICITIS
  5. OXYGEN [Concomitant]
     Indication: IDIOPATHIC PULMONARY FIBROSIS
     Dates: start: 20120407
  6. FLEXERIL [Concomitant]
     Dates: start: 20120715
  7. FUROSEMIDE [Concomitant]
     Indication: PULMONARY ARTERIAL HYPERTENSION
  8. NAPROXEN [Concomitant]
     Indication: SYSTEMIC LUPUS ERYTHEMATOSUS
  9. HYDROXYCHLOROQUINE [Concomitant]
     Indication: SYSTEMIC LUPUS ERYTHEMATOSUS
  10. HYDROXYCHLOROQUINE [Concomitant]
     Indication: RHEUMATOID ARTHRITIS
  11. METHOTREXATE [Concomitant]
     Indication: RHEUMATOID ARTHRITIS

REACTIONS (1)
  - Idiopathic pulmonary fibrosis [Unknown]
